FAERS Safety Report 5745261-1 (Version None)
Quarter: 2008Q2

REPORT INFORMATION
  Report Type: 
  Country: None (occurrence: None)
  Receive Date: 20080521
  Receipt Date: 20071115
  Transmission Date: 20081010
  Serious: Yes (Other)
  Sender: FDA-Public Use
  Company Number: US-JNJFOC-20071106413

PATIENT
  Age: 57 Year
  Sex: Female
  Weight: 99 kg

DRUGS (1)
  1. DOXIL [Suspect]
     Indication: OVARIAN CANCER RECURRENT
     Route: 042

REACTIONS (4)
  - PAIN [None]
  - PALMAR-PLANTAR ERYTHRODYSAESTHESIA SYNDROME [None]
  - RASH GENERALISED [None]
  - VISION BLURRED [None]
